FAERS Safety Report 16499672 (Version 1)
Quarter: 2019Q3

REPORT INFORMATION
  Report Type: Spontaneous
  Country: SE (occurrence: SE)
  Receive Date: 20190701
  Receipt Date: 20190701
  Transmission Date: 20191004
  Serious: Yes (Hospitalization)
  Sender: FDA-Public Use
  Company Number: SE-TEVA-2019-SE-1070269

PATIENT
  Age: 50 Year
  Sex: Female

DRUGS (3)
  1. ZOPICLONE [Concomitant]
     Active Substance: ZOPICLONE
     Dosage: UNKNOWN QUANTITIES
     Route: 048
  2. METHYLPHENIDATE. [Concomitant]
     Active Substance: METHYLPHENIDATE
     Dosage: UNKNOWN QUANTITIES
     Route: 048
  3. QUETIAPINE. [Suspect]
     Active Substance: QUETIAPINE
     Indication: INTENTIONAL OVERDOSE
     Dosage: INGESTED 90 SLOW-RELEASE TABLETS OF QUETIAPINE 200MG (~18G)
     Route: 048

REACTIONS (6)
  - Bezoar [Recovering/Resolving]
  - Intentional overdose [Recovering/Resolving]
  - Tachycardia [Recovering/Resolving]
  - Muscle twitching [Recovering/Resolving]
  - Depressed level of consciousness [Recovering/Resolving]
  - Nystagmus [Recovering/Resolving]
